FAERS Safety Report 10783946 (Version 2)
Quarter: 2015Q2

REPORT INFORMATION
  Report Type: Report from Study
  Country: US (occurrence: US)
  Receive Date: 20150210
  Receipt Date: 20150413
  Transmission Date: 20150821
  Serious: Yes (Hospitalization, Other)
  Sender: FDA-Public Use
  Company Number: US-ABBVIE-15K-163-1342294-00

PATIENT
  Age: 57 Year
  Sex: Female
  Weight: 134.1 kg

DRUGS (11)
  1. LYRICA [Concomitant]
     Active Substance: PREGABALIN
     Indication: PRODUCT USED FOR UNKNOWN INDICATION
     Dosage: TWICE A DAY
     Route: 048
  2. ATORVASTATIN [Concomitant]
     Active Substance: ATORVASTATIN
     Indication: BLOOD CHOLESTEROL INCREASED
  3. VITAMIN D [Concomitant]
     Active Substance: CHOLECALCIFEROL
     Indication: VITAMIN D DEFICIENCY
  4. HYDROCODONE [Concomitant]
     Active Substance: HYDROCODONE
     Indication: PAIN
  5. CITALOPRAM [Concomitant]
     Active Substance: CITALOPRAM HYDROBROMIDE
     Indication: PRODUCT USED FOR UNKNOWN INDICATION
  6. MAGNESIUM [Concomitant]
     Active Substance: MAGNESIUM
     Indication: PRODUCT USED FOR UNKNOWN INDICATION
  7. HYDROCODONE AND TYLENOL [Concomitant]
     Indication: PRODUCT USED FOR UNKNOWN INDICATION
     Dosage: 5/325 ONE TABLET EVERY SIX HOURS
     Route: 048
  8. HUMIRA [Suspect]
     Active Substance: ADALIMUMAB
     Indication: RHEUMATOID ARTHRITIS
     Route: 058
     Dates: start: 2012
  9. PLAQUENIL [Concomitant]
     Active Substance: HYDROXYCHLOROQUINE SULFATE
     Indication: PRODUCT USED FOR UNKNOWN INDICATION
  10. CALCIUM [Concomitant]
     Active Substance: CALCIUM
     Indication: BLOOD CALCIUM DECREASED
  11. HYDROCODONE [Concomitant]
     Active Substance: HYDROCODONE
     Indication: PRODUCT USED FOR UNKNOWN INDICATION

REACTIONS (19)
  - Seizure [Not Recovered/Not Resolved]
  - Piloerection [Unknown]
  - Chest X-ray abnormal [Unknown]
  - Generalised tonic-clonic seizure [Unknown]
  - Blood pressure decreased [Recovered/Resolved]
  - Swelling face [Unknown]
  - Blood glucose decreased [Recovered/Resolved]
  - Fall [Recovered/Resolved]
  - Spinal cord compression [Not Recovered/Not Resolved]
  - Tooth fracture [Unknown]
  - Ankle fracture [Recovered/Resolved]
  - Cough [Recovered/Resolved]
  - Pain in extremity [Not Recovered/Not Resolved]
  - Lip injury [Recovered/Resolved]
  - Skin mass [Recovering/Resolving]
  - Influenza [Recovered/Resolved]
  - Musculoskeletal pain [Not Recovered/Not Resolved]
  - Head injury [Unknown]
  - Upper respiratory tract infection [Unknown]

NARRATIVE: CASE EVENT DATE: 2013
